FAERS Safety Report 7292845-8 (Version None)
Quarter: 2011Q1

REPORT INFORMATION
  Report Type: 
  Country: None (occurrence: None)
  Receive Date: 20110215
  Receipt Date: 20110207
  Transmission Date: 20110831
  Serious: Yes (Death, Hospitalization, Other)
  Sender: FDA-Public Use
  Company Number: TR-CELGENEUS-161-20785-11020987

PATIENT
  Age: 58 Year
  Sex: Male

DRUGS (8)
  1. AMLODIPINE [Concomitant]
     Indication: HYPERTENSION
     Route: 048
  2. URSODIOL [Concomitant]
     Route: 048
  3. ADRIAMYCIN PFS [Concomitant]
     Indication: MULTIPLE MYELOMA
     Route: 065
     Dates: start: 20010101
  4. PROTON PUMP INHIBITORS [Concomitant]
     Indication: DYSPEPSIA
     Route: 065
  5. VINCRISTINE [Concomitant]
     Indication: MULTIPLE MYELOMA
     Route: 065
     Dates: start: 20010101
  6. THALIDOMIDE [Suspect]
     Indication: MULTIPLE MYELOMA
     Route: 048
     Dates: start: 20010101
  7. AMOXICILLIN [Concomitant]
     Indication: TOOTH INFECTION
     Route: 065
  8. DEXAMETHASONE [Concomitant]
     Indication: MULTIPLE MYELOMA
     Route: 065
     Dates: start: 20010101

REACTIONS (2)
  - SEPSIS [None]
  - ACUTE HEPATIC FAILURE [None]
